FAERS Safety Report 6829668-7 (Version None)
Quarter: 2010Q3

REPORT INFORMATION
  Report Type: 
  Country: None (occurrence: None)
  Receive Date: 20100709
  Receipt Date: 20070430
  Transmission Date: 20110219
  Serious: No
  Sender: FDA-Public Use
  Company Number: US-PFIZER INC-2007016838

PATIENT
  Sex: Female
  Weight: 80.29 kg

DRUGS (10)
  1. CHANTIX [Suspect]
     Indication: SMOKING CESSATION THERAPY
     Route: 048
     Dates: start: 20070223
  2. VERAPAMIL [Concomitant]
  3. HYDROCHLOROTHIAZIDE [Concomitant]
  4. LISINOPRIL [Concomitant]
  5. CELEXA [Concomitant]
  6. AMBIEN [Concomitant]
  7. CYCLOBENZAPRINE [Concomitant]
  8. OTHER RESPIRATORY SYSTEM PRODUCTS [Concomitant]
     Route: 055
  9. AEROBID [Concomitant]
     Route: 055
  10. COMBIVENT [Concomitant]
     Route: 055

REACTIONS (3)
  - BRONCHITIS [None]
  - HEADACHE [None]
  - PRODUCTIVE COUGH [None]
